FAERS Safety Report 14493168 (Version 1)
Quarter: 2018Q1

REPORT INFORMATION
  Report Type: Spontaneous
  Country: US (occurrence: US)
  Receive Date: 20180205
  Receipt Date: 20180205
  Transmission Date: 20180509
  Serious: Yes (Hospitalization, Other)
  Sender: FDA-Public Use
  Company Number: None

PATIENT

DRUGS (2)
  1. GLIMEPERIDE [Suspect]
     Active Substance: GLIMEPIRIDE
  2. LINAGLIPTIN [Suspect]
     Active Substance: LINAGLIPTIN

REACTIONS (2)
  - Therapy cessation [None]
  - Hypoglycaemia [None]
